FAERS Safety Report 20009021 (Version 1)
Quarter: 2021Q4

REPORT INFORMATION
  Report Type: Spontaneous
  Country: GR (occurrence: GR)
  Receive Date: 20211028
  Receipt Date: 20211028
  Transmission Date: 20220303
  Serious: Yes (Other)
  Sender: FDA-Public Use
  Company Number: GR-FRESENIUS KABI-FK202111422

PATIENT
  Age: 48 Year
  Sex: Female
  Weight: 76 kg

DRUGS (4)
  1. LACTATED RINGERS SOLUTION [Suspect]
     Active Substance: CALCIUM CHLORIDE\POTASSIUM CHLORIDE\SODIUM CHLORIDE\SODIUM LACTATE
     Indication: Product used for unknown indication
     Route: 042
  2. ROPIVACAINE [Suspect]
     Active Substance: ROPIVACAINE
     Indication: Anaesthesia
     Route: 037
  3. FENTANYL [Concomitant]
     Active Substance: FENTANYL
     Indication: Product used for unknown indication
  4. GLUCOSE/LIDOCAINE HYDROCHLORIDE [Concomitant]
     Indication: Local anaesthesia

REACTIONS (3)
  - Hypotension [Recovered/Resolved]
  - Nausea [Recovered/Resolved]
  - Maternal exposure during pregnancy [Recovered/Resolved]
